FAERS Safety Report 7398361-7 (Version None)
Quarter: 2011Q2

REPORT INFORMATION
  Report Type: 
  Country: None (occurrence: None)
  Receive Date: 20110406
  Receipt Date: 20110324
  Transmission Date: 20111010
  Serious: Yes (Hospitalization)
  Sender: FDA-Public Use
  Company Number: FR-MERCK-1103FRA00086

PATIENT
  Age: 65 Year
  Sex: Female
  Weight: 110 kg

DRUGS (19)
  1. LEVOMEPROMAZINE [Concomitant]
     Route: 065
  2. CIPROFLOXACIN HCL [Suspect]
     Indication: DIABETIC FOOT
     Route: 048
     Dates: start: 20101011
  3. ACEPROMETAZINE MALEATE AND MEPROBAMATE [Concomitant]
     Route: 065
  4. CLINDAMYCIN HCL [Suspect]
     Indication: DIABETIC FOOT
     Route: 048
     Dates: start: 20101014, end: 20101021
  5. ENOXAPARIN SODIUM [Concomitant]
     Route: 065
  6. TRAMADOL HCL [Suspect]
     Route: 048
     Dates: start: 20101019
  7. PERINDOPRIL ARGININE [Concomitant]
     Route: 065
  8. SACCHAROMYCES BOULARDII [Concomitant]
     Route: 048
  9. OXACILLIN SODIUM [Concomitant]
     Route: 065
     Dates: start: 20101008, end: 20101011
  10. GLIMEPIRIDE [Suspect]
     Indication: DIABETES MELLITUS
     Route: 048
     Dates: start: 20101014
  11. PRAVASTATIN SODIUM [Concomitant]
     Route: 065
  12. ESCITALOPRAM OXALATE [Concomitant]
     Indication: DIABETIC FOOT
     Route: 048
  13. LEVOTHYROXINE SODIUM [Concomitant]
     Route: 065
  14. PRISTINAMYCIN [Concomitant]
     Indication: DIABETIC FOOT
     Route: 065
     Dates: start: 20101012, end: 20101014
  15. NEFOPAM HYDROCHLORIDE [Concomitant]
     Indication: PAIN
     Route: 048
  16. DEXAMETHASONE ACETATE [Concomitant]
     Route: 065
     Dates: start: 20101019, end: 20101021
  17. JANUMET [Suspect]
     Indication: DIABETES MELLITUS
     Route: 048
     Dates: start: 20101014
  18. CLORAZEPATE DIPOTASSIUM [Concomitant]
     Route: 065
  19. ACETAMINOPHEN [Concomitant]
     Route: 048

REACTIONS (3)
  - RASH PAPULAR [None]
  - OVERDOSE [None]
  - PRURITUS [None]
